FAERS Safety Report 9468811 (Version 1)
Quarter: 2013Q3

REPORT INFORMATION
  Report Type: Spontaneous
  Country: GB (occurrence: GB)
  Receive Date: 20130821
  Receipt Date: 20130821
  Transmission Date: 20140515
  Serious: Yes (Other)
  Sender: FDA-Public Use
  Company Number: GB-BAYER-2013-100958

PATIENT
  Sex: Male
  Weight: 85 kg

DRUGS (10)
  1. ULTRAVIST 150 [Suspect]
     Indication: ANGIOGRAM
     Dosage: 45 ML, ONCE
     Route: 013
     Dates: start: 20130701, end: 20130701
  2. ASPIRIN [Concomitant]
     Dosage: 300 MG, UNK
     Route: 048
     Dates: start: 20130630
  3. CLOPIDOGREL [Concomitant]
     Dosage: 600 MG, UNK
     Route: 048
     Dates: start: 20130630
  4. CLOPIDOGREL [Concomitant]
     Dosage: 75 MG, UNK
     Route: 048
     Dates: start: 20130707
  5. DIAZEMULS [Concomitant]
     Dosage: 50 MG, UNK
  6. FONDAPARINUX [Concomitant]
     Dosage: 2.5 MG, UNK
     Route: 058
  7. IBUPROFEN [Concomitant]
     Dosage: 400 MG, UNK
     Route: 048
     Dates: start: 20130620
  8. MONTELUKAST [Concomitant]
  9. PARACETAMOL [Concomitant]
     Dosage: 1 G, UNK
     Route: 048
     Dates: start: 20130630
  10. SERETIDE [Concomitant]

REACTIONS (4)
  - Lip swelling [Recovering/Resolving]
  - Eye swelling [Recovering/Resolving]
  - Sneezing [Recovering/Resolving]
  - Cough [Recovering/Resolving]
